FAERS Safety Report 21434491 (Version 1)
Quarter: 2022Q4

REPORT INFORMATION
  Report Type: Spontaneous
  Country: ES (occurrence: None)
  Receive Date: 20221010
  Receipt Date: 20221010
  Transmission Date: 20230113
  Serious: Yes (Hospitalization, Other)
  Sender: FDA-Public Use
  Company Number: ES-MICRO LABS LIMITED-ML2022-04978

PATIENT
  Age: 77 Year
  Sex: Female

DRUGS (6)
  1. BUPROPION [Suspect]
     Active Substance: BUPROPION
     Indication: Major depression
  2. LITHIUM [Suspect]
     Active Substance: LITHIUM
     Indication: Major depression
  3. QUETIAPINE [Suspect]
     Active Substance: QUETIAPINE
     Indication: Major depression
  4. METHYLPHENIDATE [Suspect]
     Active Substance: METHYLPHENIDATE
     Indication: Major depression
  5. PROPOFOL [Concomitant]
     Active Substance: PROPOFOL
     Indication: Anaesthesia
  6. suxamethonium-chloride [Concomitant]
     Indication: Anaesthesia

REACTIONS (2)
  - Drug ineffective [Unknown]
  - Myoclonic epilepsy [Recovered/Resolved]
